FAERS Safety Report 7248085-1 (Version None)
Quarter: 2011Q1

REPORT INFORMATION
  Report Type: 
  Country: None (occurrence: None)
  Receive Date: 20110127
  Receipt Date: 20100601
  Transmission Date: 20110831
  Serious: No
  Sender: FDA-Public Use
  Company Number: US-MYLANLABS-2010S1009842

PATIENT
  Age: 57 Year
  Sex: Male

DRUGS (6)
  1. PHENYTOIN SODIUM CAP [Suspect]
     Indication: CONVULSION
     Route: 048
     Dates: start: 20100519
  2. PHENYTOIN SODIUM CAP [Suspect]
     Route: 048
     Dates: start: 20100519
  3. ALLOPURINOL [Concomitant]
  4. ACETAMINOPHEN AND HYDROCODONE BITARTRATE [Concomitant]
     Dosage: 5MG/500MG
  5. LORAZEPAM [Concomitant]
  6. KEFLEX [Concomitant]

REACTIONS (1)
  - DRUG LEVEL BELOW THERAPEUTIC [None]
